FAERS Safety Report 7750317-8 (Version None)
Quarter: 2011Q3

REPORT INFORMATION
  Report Type: 
  Country: None (occurrence: None)
  Receive Date: 20110912
  Receipt Date: 20110830
  Transmission Date: 20111222
  Serious: Yes (Life-Threatening, Hospitalization, Other)
  Sender: FDA-Public Use
  Company Number: GER/UKI/10/0011544

PATIENT
  Age: 39 Year
  Sex: Male

DRUGS (11)
  1. CLOZARIL [Suspect]
     Indication: SCHIZOPHRENIA
     Dosage: 600 MG, 1 IN 1 D, ORAL; 600 MG, 1 IN 1 D, ORAL
     Route: 048
     Dates: start: 20031202
  2. CLOZARIL [Suspect]
     Indication: SCHIZOPHRENIA
     Dosage: 600 MG, 1 IN 1 D, ORAL; 600 MG, 1 IN 1 D, ORAL
     Route: 048
     Dates: start: 20090217
  3. LISINOPRIL [Suspect]
     Indication: HYPERTENSION
     Dosage: 5 MG, 1 IN 1 D, ORAL
     Route: 048
     Dates: start: 20090217
  4. HYOSCINE HBR HYT [Suspect]
     Indication: PRODUCT USED FOR UNKNOWN INDICATION
     Dosage: ORAL
     Route: 048
     Dates: start: 20090217
  5. SENNA (SENNA ALEXANDRINA) [Suspect]
     Indication: CONSTIPATION
     Dosage: ORAL
     Route: 048
  6. THIAMIN CHLORIDE TAB [Concomitant]
  7. SIMVASTATIN [Suspect]
     Indication: BLOOD CHOLESTEROL INCREASED
     Dosage: 40 MG, ORAL
     Route: 048
     Dates: start: 20090217
  8. OMEPRAZOLE [Suspect]
     Indication: PRODUCT USED FOR UNKNOWN INDICATION
     Dosage: ORAL
     Route: 048
     Dates: start: 20090217
  9. METFORMIN HCL [Suspect]
     Indication: TYPE 2 DIABETES MELLITUS
     Dosage: 500 MG, 3 IN 1 D, ORAL
     Route: 048
     Dates: start: 20090217
  10. CLOMIPRAMINE HCL [Suspect]
     Indication: DEPRESSION
     Dosage: 200 MG, 1 IN  1 D, ORAL
     Route: 048
     Dates: start: 20090217
  11. CLOMIPRAMINE HCL [Suspect]
     Indication: ANXIETY
     Dosage: 200 MG, 1 IN  1 D, ORAL
     Route: 048
     Dates: start: 20090217

REACTIONS (6)
  - MECHANICAL VENTILATION [None]
  - NEUTROPHIL COUNT DECREASED [None]
  - COMA SCALE ABNORMAL [None]
  - WHITE BLOOD CELL COUNT INCREASED [None]
  - OVERDOSE [None]
  - AGITATION [None]
